FAERS Safety Report 21914690 (Version 1)
Quarter: 2023Q1

REPORT INFORMATION
  Report Type: Spontaneous
  Country: NL (occurrence: NL)
  Receive Date: 20230126
  Receipt Date: 20230126
  Transmission Date: 20230417
  Serious: Yes (Hospitalization, Disabling, Other)
  Sender: FDA-Public Use
  Company Number: NL-LRB-00860772

PATIENT
  Sex: Female
  Weight: 80 kg

DRUGS (2)
  1. ZOLMITRIPTAN [Suspect]
     Active Substance: ZOLMITRIPTAN
     Indication: Migraine with aura
     Dosage: 2.5 MILLIGRAM (EENMALIG Z.N.)
     Route: 065
     Dates: start: 20150101
  2. DROSPIRENONE\ETHINYL ESTRADIOL [Suspect]
     Active Substance: DROSPIRENONE\ETHINYL ESTRADIOL
     Indication: Heavy menstrual bleeding
     Dosage: 1 DOSAGE FORM, ONCE A DAY (1DD1)
     Route: 065
     Dates: start: 20080506

REACTIONS (3)
  - Cerebral infarction [Recovering/Resolving]
  - Hemiparesis [Recovering/Resolving]
  - Hemianopia [Not Recovered/Not Resolved]
